FAERS Safety Report 5135775-X (Version None)
Quarter: 2006Q4

REPORT INFORMATION
  Report Type: 
  Country: None (occurrence: None)
  Receive Date: 20061024
  Receipt Date: 20061024
  Transmission Date: 20070319
  Serious: Yes (Hospitalization)
  Sender: FDA-Public Use
  Company Number: None

PATIENT
  Age: 83 Year
  Sex: Male
  Weight: 84.8 kg

DRUGS (1)
  1. COUMADIN [Suspect]
     Indication: ATRIAL FLUTTER
     Dosage: 5MG  QDAY    PO
     Route: 048
     Dates: start: 20060929, end: 20061015

REACTIONS (2)
  - INTERNATIONAL NORMALISED RATIO INCREASED [None]
  - RECTAL HAEMORRHAGE [None]
